FAERS Safety Report 7653185-8 (Version None)
Quarter: 2011Q3

REPORT INFORMATION
  Report Type: 
  Country: None (occurrence: None)
  Receive Date: 20110802
  Receipt Date: 20110802
  Transmission Date: 20111222
  Serious: Yes (Disabling)
  Sender: FDA-Public Use
  Company Number: None

PATIENT
  Age: 90 Year
  Sex: Male
  Weight: 63.5036 kg

DRUGS (2)
  1. TIMOLOL MALEATE [Suspect]
     Indication: GLAUCOMA
     Dosage: 0.50 1 DROP/DAY EYE
     Dates: start: 20101226, end: 20101229
  2. ARICEPT [Suspect]
     Indication: DEMENTIA ALZHEIMER'S TYPE
     Dosage: 1 PILL/DAY MOUTH
     Route: 048
     Dates: start: 20020101, end: 20050101

REACTIONS (3)
  - RETINAL VEIN OCCLUSION [None]
  - VISUAL IMPAIRMENT [None]
  - ABDOMINAL PAIN LOWER [None]
